FAERS Safety Report 5513825-6 (Version None)
Quarter: 2007Q4

REPORT INFORMATION
  Report Type: 
  Country: None (occurrence: None)
  Receive Date: 20071113
  Receipt Date: 20071102
  Transmission Date: 20080405
  Serious: Yes (Hospitalization)
  Sender: FDA-Public Use
  Company Number: FR-ELI_LILLY_AND_COMPANY-FR200711001206

PATIENT

DRUGS (5)
  1. ZYPREXA [Suspect]
     Indication: BRIEF PSYCHOTIC DISORDER WITH MARKED STRESSORS
     Dosage: 10 MG, DAILY (1/D)
     Route: 064
     Dates: start: 20060505, end: 20060717
  2. ZYPREXA [Suspect]
     Dosage: 5 MG, DAILY (1/D)
     Route: 064
     Dates: start: 20060718, end: 20060802
  3. TERCIAN [Concomitant]
     Route: 064
     Dates: start: 20060521, end: 20060802
  4. TRIMEPRAZINE TAB [Concomitant]
     Dosage: UNK, UNK
     Route: 064
     Dates: start: 20060521, end: 20060701
  5. DEROXAT [Concomitant]
     Route: 064

REACTIONS (9)
  - DRUG EXPOSURE DURING PREGNANCY [None]
  - ESCHERICHIA SEPSIS [None]
  - HAEMATOMA [None]
  - HYPOTONIA NEONATAL [None]
  - MECONIUM ILEUS [None]
  - NECROTISING ENTEROCOLITIS NEONATAL [None]
  - OEDEMA [None]
  - URINE SODIUM INCREASED [None]
  - WEIGHT DECREASE NEONATAL [None]
